FAERS Safety Report 17109966 (Version 1)
Quarter: 2019Q4

REPORT INFORMATION
  Report Type: Report from Study
  Country: CL (occurrence: CL)
  Receive Date: 20191204
  Receipt Date: 20191204
  Transmission Date: 20200122
  Serious: Yes (Other)
  Sender: FDA-Public Use
  Company Number: PHHY2018CL187759

PATIENT
  Age: 53 Year
  Sex: Female

DRUGS (12)
  1. KISQALI [Suspect]
     Active Substance: RIBOCICLIB
     Indication: BREAST CANCER
     Dosage: 600 MG, UNK
     Route: 048
     Dates: start: 20181207
  2. KISQALI [Suspect]
     Active Substance: RIBOCICLIB
     Dosage: 600 MG, UNK
     Route: 048
  3. KISQALI [Suspect]
     Active Substance: RIBOCICLIB
     Dosage: UNK
     Route: 065
     Dates: start: 20190112
  4. KISQALI [Suspect]
     Active Substance: RIBOCICLIB
     Dosage: 600 MG, UNK
     Route: 048
     Dates: end: 20190703
  5. KISQALI [Suspect]
     Active Substance: RIBOCICLIB
     Dosage: 150 MG, UNK
     Route: 048
  6. KISQALI [Suspect]
     Active Substance: RIBOCICLIB
     Dosage: 400 MG, UNK
     Route: 048
     Dates: start: 20190815
  7. KISQALI [Suspect]
     Active Substance: RIBOCICLIB
     Dosage: 400 MG, UNK
     Route: 048
  8. ELCAL D [Concomitant]
     Indication: PRODUCT USED FOR UNKNOWN INDICATION
     Dosage: 1 DF, QD (IN THE MORNING)
     Route: 065
  9. KISQALI [Suspect]
     Active Substance: RIBOCICLIB
     Dosage: 600 MG, UNK
     Route: 048
  10. KISQALI [Suspect]
     Active Substance: RIBOCICLIB
     Dosage: 600 MG, UNK
     Route: 048
     Dates: start: 20190710
  11. FASLODEX [Concomitant]
     Active Substance: FULVESTRANT
     Indication: BREAST CANCER
     Dosage: 500 MG, (250MG IN EACH BUTTOCK)
     Route: 065
     Dates: start: 20181127
  12. KISQALI [Suspect]
     Active Substance: RIBOCICLIB
     Dosage: 400 MG
     Route: 048

REACTIONS (32)
  - Rectal haemorrhage [Recovered/Resolved]
  - Application site inflammation [Recovering/Resolving]
  - Skin burning sensation [Unknown]
  - Platelet disorder [Unknown]
  - Anisocytosis [Unknown]
  - Mean cell haemoglobin increased [Unknown]
  - Lymphocyte count increased [Unknown]
  - Constipation [Recovered/Resolved]
  - Blood test abnormal [Unknown]
  - Gastric disorder [Unknown]
  - Poikilocytosis [Unknown]
  - Globulins decreased [Not Recovered/Not Resolved]
  - Cough [Not Recovered/Not Resolved]
  - Drug ineffective [Unknown]
  - Platelet count decreased [Not Recovered/Not Resolved]
  - Monocyte count increased [Unknown]
  - Neutrophil count decreased [Unknown]
  - Application site pruritus [Recovering/Resolving]
  - Hypermetabolism [Unknown]
  - Depressed mood [Unknown]
  - Polyp [Recovered/Resolved]
  - Blood cholesterol increased [Unknown]
  - Red blood cell elliptocytes present [Unknown]
  - Fatigue [Unknown]
  - Red blood cell count decreased [Unknown]
  - Pruritus [Unknown]
  - Nasopharyngitis [Unknown]
  - Underdose [Unknown]
  - Leukopenia [Unknown]
  - Pulmonary mass [Unknown]
  - Red cell distribution width increased [Unknown]
  - Visual impairment [Not Recovered/Not Resolved]

NARRATIVE: CASE EVENT DATE: 20181208
